FAERS Safety Report 16979401 (Version 1)
Quarter: 2019Q4

REPORT INFORMATION
  Report Type: Spontaneous
  Country: US (occurrence: US)
  Receive Date: 20191031
  Receipt Date: 20191031
  Transmission Date: 20200122
  Serious: No
  Sender: FDA-Public Use
  Company Number: US-BAYER-2019-196560

PATIENT
  Age: 79 Year
  Sex: Female
  Weight: 95 kg

DRUGS (11)
  1. ASPIRIN (PAIN AND FEVER) [Suspect]
     Active Substance: ASPIRIN
  2. TRAMADOL. [Concomitant]
     Active Substance: TRAMADOL
  3. GABAPENTIN. [Concomitant]
     Active Substance: GABAPENTIN
  4. SYNTHROID [Concomitant]
     Active Substance: LEVOTHYROXINE SODIUM
  5. ASCORBIC ACID. [Concomitant]
     Active Substance: ASCORBIC ACID
  6. ELOQUINE [Concomitant]
     Active Substance: MEFLOQUINE HYDROCHLORIDE
  7. CLARITIN [Suspect]
     Active Substance: LORATADINE
     Indication: SPEECH DISORDER
     Dosage: 1 DF, OM
     Route: 048
     Dates: end: 20191029
  8. POTASSIUM [Concomitant]
     Active Substance: POTASSIUM
  9. ROPINIROLE. [Concomitant]
     Active Substance: ROPINIROLE
  10. CLARITIN [Suspect]
     Active Substance: LORATADINE
     Indication: DYSPNOEA
  11. MELATONIN [Concomitant]
     Active Substance: MELATONIN

REACTIONS (5)
  - Malaise [Unknown]
  - Product use in unapproved indication [Unknown]
  - Dizziness [Unknown]
  - Vertigo [Unknown]
  - Product physical issue [None]
